FAERS Safety Report 5197740-6 (Version None)
Quarter: 2006Q4

REPORT INFORMATION
  Report Type: 
  Country: None (occurrence: None)
  Receive Date: 20061227
  Receipt Date: 20061215
  Transmission Date: 20070319
  Serious: Yes (Hospitalization, Other)
  Sender: FDA-Public Use
  Company Number: 2006145129

PATIENT
  Sex: Male

DRUGS (4)
  1. LYRICA [Suspect]
     Indication: BACK PAIN
     Dosage: 4200 MG, ORAL
     Route: 048
     Dates: start: 20050311
  2. PARALGIN FORTE (CODEINE PHOSPHATE, PARACETAMOL) [Concomitant]
  3. PARACET (PARACETAMOL) [Concomitant]
  4. IBUX (IBUPROFEN) [Concomitant]

REACTIONS (8)
  - DRUG DEPENDENCE [None]
  - DRUG TOLERANCE [None]
  - DRUG TOXICITY [None]
  - DRUG WITHDRAWAL SYNDROME [None]
  - HYPERHIDROSIS [None]
  - INTENTIONAL OVERDOSE [None]
  - MEMORY IMPAIRMENT [None]
  - SUBSTANCE ABUSE [None]
